FAERS Safety Report 13147434 (Version 2)
Quarter: 2023Q4

REPORT INFORMATION
  Report Type: Report from Study
  Country: US (occurrence: US)
  Receive Date: 20170125
  Receipt Date: 20231101
  Transmission Date: 20240110
  Serious: Yes (Other)
  Sender: FDA-Public Use
  Company Number: US-SHIRE-US201701298

PATIENT
  Sex: Male

DRUGS (2)
  1. IDURSULFASE [Suspect]
     Active Substance: IDURSULFASE
     Indication: Mucopolysaccharidosis II
     Dosage: 30 MILLIGRAM, 1/WEEK
     Route: 042
     Dates: start: 20111214
  2. SODIUM CHLORIDE [Concomitant]
     Active Substance: SODIUM CHLORIDE
     Dosage: UNK
     Route: 065

REACTIONS (4)
  - Dysphagia [Unknown]
  - Weight decreased [Unknown]
  - Aspiration [Unknown]
  - COVID-19 [Not Recovered/Not Resolved]
